FAERS Safety Report 24044489 (Version 2)
Quarter: 2024Q3

REPORT INFORMATION
  Report Type: Other
  Country: US (occurrence: US)
  Receive Date: 20240703
  Receipt Date: 20240808
  Transmission Date: 20241017
  Serious: No
  Sender: APOTEX
  Company Number: US-APOTEX-2024AP007755

PATIENT

DRUGS (2)
  1. MODAFINIL [Suspect]
     Active Substance: MODAFINIL
     Indication: Narcolepsy
     Dosage: 200 MILLIGRAM, QD
     Route: 065
     Dates: start: 20230807
  2. MODAFINIL [Suspect]
     Active Substance: MODAFINIL
     Indication: Sleep apnoea syndrome

REACTIONS (2)
  - Product formulation issue [Unknown]
  - Therapeutic response decreased [Unknown]
